FAERS Safety Report 4928792-3 (Version None)
Quarter: 2006Q1

REPORT INFORMATION
  Report Type: 
  Country: None (occurrence: None)
  Receive Date: 20060227
  Receipt Date: 20060227
  Transmission Date: 20060701
  Serious: Yes (Other)
  Sender: FDA-Public Use
  Company Number: None

PATIENT
  Age: 45 Year
  Sex: Female
  Weight: 108.8633 kg

DRUGS (1)
  1. ISOVUE (IOPAMIDOL INJ. 76%) [Suspect]
     Dosage: 76 CC IC

REACTIONS (2)
  - POST PROCEDURAL COMPLICATION [None]
  - URTICARIA [None]
